FAERS Safety Report 21945262 (Version 3)
Quarter: 2023Q1

REPORT INFORMATION
  Report Type: Report from Study
  Country: BE (occurrence: BE)
  Receive Date: 20230202
  Receipt Date: 20230301
  Transmission Date: 20230417
  Serious: Yes (Hospitalization)
  Sender: FDA-Public Use
  Company Number: BE-HORIZON THERAPEUTICS-HZN-2023-000846

PATIENT

DRUGS (11)
  1. PROCYSBI [Suspect]
     Active Substance: CYSTEAMINE BITARTRATE
     Indication: Cystinosis
     Dosage: 35 MG/KG/DAY,  BID
     Route: 048
     Dates: start: 20151216
  2. PROCYSBI [Suspect]
     Active Substance: CYSTEAMINE BITARTRATE
     Dosage: 750 MG, BID
     Route: 048
     Dates: start: 20151216, end: 20210630
  3. PROCYSBI [Suspect]
     Active Substance: CYSTEAMINE BITARTRATE
     Dosage: 900 MG, QD AND 750 MG, QD
     Route: 048
     Dates: start: 20210701
  4. ZESTRIL [Concomitant]
     Active Substance: LISINOPRIL
     Indication: Cystinosis
     Dosage: 1 MG DAILY
     Dates: start: 2014
  5. GLYCYRRHIZA GLABRA;PAEONIA LACTIFLORA [Concomitant]
     Indication: Cystinosis
     Dosage: 1.25 UG DAILY
     Route: 048
     Dates: start: 201810
  6. NORDITROPIN [Concomitant]
     Active Substance: SOMATROPIN
     Indication: Weight gain poor
     Dosage: 2.3 MG DAILY
     Route: 058
     Dates: start: 201910
  7. CHOLECALCIFEROL [Concomitant]
     Active Substance: CHOLECALCIFEROL
     Indication: Cystinosis
     Dosage: 25000 IU DAILY
     Route: 048
     Dates: start: 202002
  8. CYSTADROPS [Concomitant]
     Active Substance: CYSTEAMINE HYDROCHLORIDE
     Indication: Cystinosis
     Dosage: 2 DROPLETS
     Route: 047
     Dates: start: 202007
  9. POTASSIUM CITRATE [Concomitant]
     Active Substance: POTASSIUM CITRATE
     Indication: Cystinosis
     Dosage: 9 G, BID
     Route: 048
     Dates: start: 202009
  10. SODIUM PHOSPHATE [Concomitant]
     Active Substance: SODIUM PHOSPHATE
     Indication: Cystinosis
     Dosage: 1 DOSAGE FORM DAILY
     Route: 048
     Dates: start: 202009
  11. SODIUM BICARBONATE [Concomitant]
     Active Substance: SODIUM BICARBONATE
     Indication: Cystinosis
     Dosage: 1 G, TID
     Route: 048
     Dates: start: 202009

REACTIONS (1)
  - Intestinal obstruction [Recovered/Resolved]

NARRATIVE: CASE EVENT DATE: 20221007
